FAERS Safety Report 14197605 (Version 8)
Quarter: 2018Q2

REPORT INFORMATION
  Report Type: Report from Study
  Country: None (occurrence: NL)
  Receive Date: 20171116
  Receipt Date: 20180410
  Transmission Date: 20180711
  Serious: Yes (Hospitalization, Other)
  Sender: FDA-Public Use
  Company Number: NL-ABBVIE-17K-114-2164824-00

PATIENT
  Sex: Female
  Weight: 65 kg

DRUGS (3)
  1. DUODOPA [Suspect]
     Active Substance: CARBIDOPA\LEVODOPA
     Indication: PARKINSON^S DISEASE
     Dosage: MORNING DOSE: 7.0  CONTINUOUS DOSE:5.1 EXTRA DOSE: 2.0
     Route: 050
     Dates: start: 20171030
  2. DUODOPA [Suspect]
     Active Substance: CARBIDOPA\LEVODOPA
     Dosage: MD: 3.0, CD: 3.9, ED: 1.2, CND: 0.9, END: 1.0
     Route: 050
  3. CLOZAPINE. [Suspect]
     Active Substance: CLOZAPINE
     Indication: PRODUCT USED FOR UNKNOWN INDICATION
     Route: 065

REACTIONS (14)
  - Confusional state [Not Recovered/Not Resolved]
  - Hallucination [Recovered/Resolved]
  - Stoma site extravasation [Not Recovered/Not Resolved]
  - Somnolence [Not Recovered/Not Resolved]
  - Hypoaesthesia [Not Recovered/Not Resolved]
  - Constipation [Recovered/Resolved]
  - Psychotic disorder [Recovering/Resolving]
  - Obsessive-compulsive disorder [Not Recovered/Not Resolved]
  - Faecaloma [Recovered/Resolved]
  - Hypogeusia [Recovering/Resolving]
  - Parkinson^s disease [Not Recovered/Not Resolved]
  - Device use issue [Unknown]
  - Tremor [Not Recovered/Not Resolved]
  - Constipation [Recovered/Resolved]

NARRATIVE: CASE EVENT DATE: 2017
